FAERS Safety Report 5736021-6 (Version None)
Quarter: 2008Q2

REPORT INFORMATION
  Report Type: 
  Country: None (occurrence: None)
  Receive Date: 20080513
  Receipt Date: 20080430
  Transmission Date: 20081010
  Serious: Yes (Life-Threatening)
  Sender: FDA-Public Use
  Company Number: US-AVENTIS-200512775US

PATIENT
  Sex: Female
  Weight: 86.1 kg

DRUGS (2)
  1. CODE UNBROKEN [Suspect]
     Dosage: DOSE: TWO CAPS
     Route: 048
     Dates: start: 20050328, end: 20050403
  2. COUMADIN [Suspect]
     Indication: ATRIAL FIBRILLATION
     Dosage: DOSE: UNK

REACTIONS (2)
  - EPISTAXIS [None]
  - HYPOPROTHROMBINAEMIA [None]
